FAERS Safety Report 15997202 (Version 6)
Quarter: 2019Q4

REPORT INFORMATION
  Report Type: Report from Study
  Country: US (occurrence: US)
  Receive Date: 20190222
  Receipt Date: 20191002
  Transmission Date: 20200122
  Serious: Yes (Hospitalization, Other)
  Sender: FDA-Public Use
  Company Number: PHEH2019US007970

PATIENT
  Age: 49 Year
  Sex: Female

DRUGS (1)
  1. GILENYA [Suspect]
     Active Substance: FINGOLIMOD HYDROCHLORIDE
     Indication: MULTIPLE SCLEROSIS
     Dosage: 0.5 MG, QD
     Route: 048
     Dates: start: 20190201

REACTIONS (17)
  - Hypoaesthesia oral [Unknown]
  - Tongue discomfort [Unknown]
  - Burning sensation [Unknown]
  - Alopecia [Unknown]
  - Infection [Unknown]
  - Vertigo [Unknown]
  - Dizziness [Unknown]
  - Gait inability [Unknown]
  - Multiple sclerosis relapse [Unknown]
  - Pain in extremity [Unknown]
  - Ageusia [Unknown]
  - Anxiety [Unknown]
  - Memory impairment [Not Recovered/Not Resolved]
  - Dyspnoea [Unknown]
  - Pain [Unknown]
  - Stress [Unknown]
  - Blindness [Unknown]

NARRATIVE: CASE EVENT DATE: 201908
